FAERS Safety Report 10403600 (Version 2)
Quarter: 2015Q1

REPORT INFORMATION
  Report Type: Spontaneous
  Country: US (occurrence: US)
  Receive Date: 20140822
  Receipt Date: 20150217
  Transmission Date: 20150720
  Serious: No
  Sender: FDA-Public Use
  Company Number: US-AMARIN PHARMA, INC.-2014AMR000050

PATIENT
  Age: 53 Year
  Sex: Female
  Weight: 78.54 kg

DRUGS (4)
  1. ZENPEP [Concomitant]
     Active Substance: PANCRELIPASE\PANCRELIPASE AMYLASE\PANCRELIPASE LIPASE\PANCRELIPASE PROTEASE
     Indication: DYSPEPSIA
     Route: 065
  2. VASCEPA [Suspect]
     Active Substance: ETHYL ICOSAPENTATE
     Indication: BLOOD CHOLESTEROL DECREASED
     Route: 048
     Dates: start: 20140714, end: 20140715
  3. DEXILANT [Concomitant]
     Active Substance: DEXLANSOPRAZOLE
     Indication: HIATUS HERNIA
  4. VITAMINS [Concomitant]
     Active Substance: VITAMINS
     Indication: PRODUCT USED FOR UNKNOWN INDICATION
     Route: 065

REACTIONS (4)
  - Dizziness [Recovered/Resolved]
  - Haematochezia [Recovered/Resolved]
  - Asthenia [Recovered/Resolved]
  - Pain [Recovered/Resolved]

NARRATIVE: CASE EVENT DATE: 201407
